FAERS Safety Report 11630554 (Version 1)
Quarter: 2015Q4

REPORT INFORMATION
  Report Type: Spontaneous
  Country: US (occurrence: US)
  Receive Date: 20151014
  Receipt Date: 20151014
  Transmission Date: 20160304
  Serious: No
  Sender: FDA-Public Use
  Company Number: US-UNICHEM LABORATORIES LIMITED-UCM201408-000158

PATIENT
  Sex: Female
  Weight: 113.39 kg

DRUGS (6)
  1. HYDROCHLOROTHIAZIDE. [Suspect]
     Active Substance: HYDROCHLOROTHIAZIDE
  2. VITAMIN B12 [Suspect]
     Active Substance: CYANOCOBALAMIN
  3. AMITRIPTYLLINE [Suspect]
     Active Substance: AMITRIPTYLINE
  4. MONTELUKAST [Suspect]
     Active Substance: MONTELUKAST SODIUM
  5. AMLODIPINE [Suspect]
     Active Substance: AMLODIPINE BESYLATE
  6. LEVOTHYROXINE. [Suspect]
     Active Substance: LEVOTHYROXINE

REACTIONS (5)
  - Diarrhoea [Not Recovered/Not Resolved]
  - Pain [Not Recovered/Not Resolved]
  - Malaise [Not Recovered/Not Resolved]
  - Vision blurred [Not Recovered/Not Resolved]
  - Discomfort [Not Recovered/Not Resolved]
